FAERS Safety Report 6918782-3 (Version None)
Quarter: 2010Q3

REPORT INFORMATION
  Report Type: 
  Country: None (occurrence: None)
  Receive Date: 20100811
  Receipt Date: 20100804
  Transmission Date: 20110219
  Serious: Yes (Hospitalization, Other)
  Sender: FDA-Public Use
  Company Number: US-RB-013911-10

PATIENT
  Age: 33 Year
  Sex: Female

DRUGS (3)
  1. SUBOXONE [Suspect]
     Route: 060
     Dates: start: 20090701
  2. SUBOXONE [Suspect]
     Indication: DRUG DEPENDENCE
     Dosage: TAPERED TO 12 MG DAILY
     Route: 060
  3. ANTIDEPRESSANTS NOT OTHERWISE SPECIFIED [Suspect]
     Indication: DEPRESSION
     Dosage: UNKNOWN DOSING DETAILS
     Route: 065

REACTIONS (5)
  - ASTHENIA [None]
  - CONVULSION [None]
  - DEPRESSION [None]
  - PERSONALITY CHANGE [None]
  - SOMNOLENCE [None]
